FAERS Safety Report 8327387-1 (Version None)
Quarter: 2012Q2

REPORT INFORMATION
  Report Type: 
  Country: None (occurrence: None)
  Receive Date: 20120502
  Receipt Date: 20120423
  Transmission Date: 20120825
  Serious: No
  Sender: FDA-Public Use
  Company Number: US-BIOGENIDEC-2012BI014079

PATIENT
  Sex: Female

DRUGS (2)
  1. AVONEX [Suspect]
     Indication: MULTIPLE SCLEROSIS
     Route: 030
     Dates: start: 20011207, end: 20090803
  2. AVONEX [Suspect]
     Route: 030
     Dates: start: 20101029

REACTIONS (2)
  - MULTIPLE SCLEROSIS [None]
  - DIABETES MELLITUS [None]
